FAERS Safety Report 8099223-2 (Version None)
Quarter: 2012Q1

REPORT INFORMATION
  Report Type: 
  Country: None (occurrence: None)
  Receive Date: 20120129
  Receipt Date: 20111005
  Transmission Date: 20120608
  Serious: No
  Sender: FDA-Public Use
  Company Number: US-ABBOTT-11P-163-0861218-00

PATIENT
  Age: 71 Year
  Sex: Female

DRUGS (9)
  1. FORTEO [Concomitant]
     Indication: FRACTURE
  2. HUMIRA [Suspect]
  3. PREDNISONE TAB [Concomitant]
     Indication: RHEUMATOID ARTHRITIS
     Dosage: 7 MG DAILY
  4. FORTEO [Concomitant]
     Indication: PROPHYLAXIS
  5. HUMIRA [Suspect]
     Dates: start: 20110601
  6. CELEBREX [Concomitant]
     Indication: ANTIINFLAMMATORY THERAPY
  7. LEVOTHYROXINE SODIUM [Concomitant]
     Indication: THYROID DISORDER
  8. ARTHRITIS STRENGTH TYLENOL [Concomitant]
     Indication: RHEUMATOID ARTHRITIS
  9. HUMIRA [Suspect]
     Indication: RHEUMATOID ARTHRITIS

REACTIONS (3)
  - INJECTION SITE PAIN [None]
  - RED BLOOD CELL SEDIMENTATION RATE INCREASED [None]
  - DEVICE MALFUNCTION [None]
